FAERS Safety Report 13406825 (Version 2)
Quarter: 2017Q2

REPORT INFORMATION
  Report Type: Spontaneous
  Country: FR (occurrence: FR)
  Receive Date: 20170405
  Receipt Date: 20170406
  Transmission Date: 20170830
  Serious: Yes (Hospitalization, Other)
  Sender: FDA-Public Use
  Company Number: FR-ABBVIE-17K-056-1928756-00

PATIENT
  Age: 45 Year
  Sex: Female

DRUGS (12)
  1. SIMPONI [Suspect]
     Active Substance: GOLIMUMAB
     Indication: BEHCET^S SYNDROME
     Route: 065
     Dates: start: 201404, end: 201508
  2. REMICADE [Suspect]
     Active Substance: INFLIXIMAB
     Indication: BEHCET^S SYNDROME
     Route: 042
     Dates: start: 201304, end: 201404
  3. HOLOXAN [Suspect]
     Active Substance: IFOSFAMIDE
     Indication: PRODUCT USED FOR UNKNOWN INDICATION
     Route: 065
  4. KIDROLASE [Suspect]
     Active Substance: ASPARAGINASE
     Indication: PRODUCT USED FOR UNKNOWN INDICATION
     Route: 065
  5. ROVAMYCINE [Concomitant]
     Active Substance: SPIRAMYCIN
     Indication: PRODUCT USED FOR UNKNOWN INDICATION
  6. PEGASYS [Suspect]
     Active Substance: PEGINTERFERON ALFA-2A
     Indication: BEHCET^S SYNDROME
     Route: 058
     Dates: start: 201608, end: 201701
  7. SERTRALINE [Concomitant]
     Active Substance: SERTRALINE HYDROCHLORIDE
     Indication: PRODUCT USED FOR UNKNOWN INDICATION
  8. HUMIRA [Suspect]
     Active Substance: ADALIMUMAB
     Indication: BEHCET^S SYNDROME
     Route: 058
     Dates: start: 2011, end: 201304
  9. METHOTREXATE. [Suspect]
     Active Substance: METHOTREXATE
     Route: 065
     Dates: start: 2014, end: 201508
  10. ROFERON-A [Suspect]
     Active Substance: INTERFERON ALFA-2A
     Indication: BEHCET^S SYNDROME
     Route: 065
     Dates: start: 2016, end: 201608
  11. METHOTREXATE. [Suspect]
     Active Substance: METHOTREXATE
     Indication: BEHCET^S SYNDROME
     Route: 065
     Dates: start: 2007, end: 2012
  12. COLCHIMAX [Suspect]
     Active Substance: COLCHICINE\DICYCLOMINE HYDROCHLORIDE
     Indication: PRODUCT USED FOR UNKNOWN INDICATION
     Route: 065
     Dates: start: 2007, end: 2016

REACTIONS (12)
  - Colon dysplasia [Unknown]
  - Pyrexia [Unknown]
  - Colon adenoma [Unknown]
  - Skin lesion [Unknown]
  - Natural killer-cell lymphoblastic lymphoma [Not Recovered/Not Resolved]
  - Pancreatitis [Unknown]
  - Hepatic steatosis [Unknown]
  - Pain of skin [Unknown]
  - Encephalopathy [Unknown]
  - Pancreatectomy [Unknown]
  - Pyrexia [Unknown]
  - Mucinous cystadenocarcinoma of pancreas [Unknown]

NARRATIVE: CASE EVENT DATE: 201504
